FAERS Safety Report 4727440-5 (Version None)
Quarter: 2005Q3

REPORT INFORMATION
  Report Type: 
  Country: None (occurrence: None)
  Receive Date: 20050727
  Receipt Date: 20050727
  Transmission Date: 20060218
  Serious: Yes (Hospitalization)
  Sender: FDA-Public Use
  Company Number: None

PATIENT
  Age: 82 Year
  Sex: Male
  Weight: 84.369 kg

DRUGS (4)
  1. COUMADIN [Suspect]
     Indication: ATRIAL FIBRILLATION
     Dosage: 5 MG DAILY PO X 2.5 MG M + THUR [CHRONIC]
     Route: 048
  2. LOTREL [Concomitant]
  3. CLONIDINE [Concomitant]
  4. CRESTOR [Concomitant]

REACTIONS (7)
  - CONTUSION [None]
  - HAEMOPTYSIS [None]
  - INTERNATIONAL NORMALISED RATIO INCREASED [None]
  - NAUSEA [None]
  - PAIN IN EXTREMITY [None]
  - SMALL INTESTINAL OBSTRUCTION [None]
  - VOMITING [None]
